FAERS Safety Report 10774980 (Version 5)
Quarter: 2016Q2

REPORT INFORMATION
  Report Type: Spontaneous
  Country: JP (occurrence: JP)
  Receive Date: 20150209
  Receipt Date: 20160623
  Transmission Date: 20160815
  Serious: Yes (Death, Hospitalization, Other)
  Sender: FDA-Public Use
  Company Number: JP-JNJFOC-20150202707

PATIENT
  Age: 73 Year
  Sex: Male
  Weight: 59 kg

DRUGS (37)
  1. MUCOSTA [Concomitant]
     Active Substance: REBAMIPIDE
     Route: 048
     Dates: start: 20141021
  2. BUSCOPAN [Concomitant]
     Active Substance: BUTYLSCOPOLAMINE BROMIDE
     Route: 048
     Dates: start: 20141101
  3. TAMSULOSIN HYDROCHLORIDE. [Concomitant]
     Active Substance: TAMSULOSIN HYDROCHLORIDE
     Route: 048
     Dates: start: 20130524, end: 20141213
  4. GENTIANA LUTEA ROOT [Concomitant]
     Active Substance: GENTIANA LUTEA ROOT
     Route: 048
     Dates: start: 20110920, end: 20141213
  5. AMITIZA [Concomitant]
     Active Substance: LUBIPROSTONE
     Route: 048
     Dates: start: 20141031
  6. PRIMPERAN [Concomitant]
     Active Substance: METOCLOPRAMIDE HYDROCHLORIDE
     Route: 051
     Dates: start: 20141031
  7. BIOFERMIN [Concomitant]
     Active Substance: BACILLUS SUBTILIS\LACTOBACILLUS ACIDOPHILUS\STREPTOCOCCUS FAECAIS
     Route: 048
     Dates: start: 20141101
  8. SODIUM BICARBONATE. [Concomitant]
     Active Substance: SODIUM BICARBONATE
     Route: 048
     Dates: start: 20110920, end: 20141213
  9. LANSOPRAZOLE. [Concomitant]
     Active Substance: LANSOPRAZOLE
     Route: 048
     Dates: start: 20110920, end: 20141213
  10. VOLTAREN [Concomitant]
     Active Substance: DICLOFENAC SODIUM
     Route: 054
     Dates: start: 20141021, end: 20141213
  11. LOPERAMIDE HYDROCHLORIDE. [Concomitant]
     Active Substance: LOPERAMIDE HYDROCHLORIDE
     Route: 048
     Dates: start: 20141101
  12. NEUPHAGEN [Concomitant]
     Route: 051
  13. MICAMLO [Concomitant]
     Active Substance: AMLODIPINE BESYLATE\TELMISARTAN
     Indication: HYPERTENSION
     Route: 048
     Dates: start: 20121012, end: 20141213
  14. MS ONSHIPPU [Concomitant]
     Route: 062
     Dates: start: 20111213, end: 20141213
  15. INTEBAN SP [Concomitant]
     Route: 048
     Dates: start: 20110920, end: 20141213
  16. BISOPROLOL FUMARATE. [Concomitant]
     Active Substance: BISOPROLOL FUMARATE
     Indication: HYPERTENSION
     Route: 048
     Dates: start: 20110920, end: 20141213
  17. DEQUALINIUM CHLORIDE [Concomitant]
     Active Substance: DEQUALINIUM CHLORIDE
     Route: 048
     Dates: start: 20141021
  18. CRAVIT [Concomitant]
     Active Substance: LEVOFLOXACIN
     Route: 048
     Dates: start: 20141101
  19. BAYASPIRIN [Concomitant]
     Active Substance: ASPIRIN
     Route: 048
     Dates: start: 20110920, end: 20141213
  20. SORASILOL [Concomitant]
     Route: 048
     Dates: start: 20110920, end: 20141213
  21. LUNESTA [Concomitant]
     Active Substance: ESZOPICLONE
     Route: 048
     Dates: start: 20140930, end: 20141213
  22. CLARITHROMYCIN. [Concomitant]
     Active Substance: CLARITHROMYCIN
     Route: 048
     Dates: start: 20141021
  23. DEPAS [Concomitant]
     Active Substance: ETIZOLAM
     Route: 048
     Dates: start: 20120622, end: 20141213
  24. HALCION [Concomitant]
     Active Substance: TRIAZOLAM
     Route: 048
  25. AMPICILLIN SODIUM. [Concomitant]
     Active Substance: AMPICILLIN SODIUM
     Route: 051
     Dates: start: 20141021
  26. PL [Concomitant]
     Active Substance: ACETAMINOPHEN\CAFFEINE\PROMETHAZINE\SALICYLAMIDE
     Route: 048
     Dates: start: 20141021
  27. PRIMPERAN [Concomitant]
     Active Substance: METOCLOPRAMIDE HYDROCHLORIDE
     Route: 048
     Dates: start: 20141031
  28. TENELIA [Concomitant]
     Active Substance: TENELIGLIPTIN
     Indication: TYPE 2 DIABETES MELLITUS
     Route: 048
     Dates: end: 20140930
  29. MARGENOL [Concomitant]
     Route: 048
     Dates: start: 20110920, end: 20141212
  30. RABBIT VACCINIA EXTRACT [Concomitant]
     Active Substance: ORYCTOLAGUS CUNICULUS SKIN
     Route: 051
     Dates: start: 20110906, end: 20141212
  31. CANAGLU [Suspect]
     Active Substance: CANAGLIFLOZIN
     Indication: TYPE 2 DIABETES MELLITUS
     Route: 048
     Dates: start: 20140930, end: 20141213
  32. LOXONIN [Concomitant]
     Active Substance: LOXOPROFEN SODIUM
     Route: 048
     Dates: start: 20141021
  33. FOSFOMYCIN SODIUM [Concomitant]
     Active Substance: FOSFOMYCIN SODIUM
     Route: 042
     Dates: start: 20141101
  34. BETAMETHASONE. [Concomitant]
     Active Substance: BETAMETHASONE
     Route: 048
     Dates: start: 20110920, end: 20141213
  35. MEVALOTIN [Concomitant]
     Active Substance: PRAVASTATIN SODIUM
     Route: 048
     Dates: start: 20110920, end: 20141213
  36. RIMATIL [Concomitant]
     Active Substance: BUCILLAMINE
     Route: 048
     Dates: start: 20110920, end: 20141213
  37. PILSICAINIDE HYDROCHLORIDE [Concomitant]
     Active Substance: PILSICAINIDE HYDROCHLORIDE
     Route: 048
     Dates: start: 20110920, end: 20141213

REACTIONS (2)
  - Compression fracture [Unknown]
  - Cardiac failure [Fatal]

NARRATIVE: CASE EVENT DATE: 20141121
